FAERS Safety Report 19174935 (Version 1)
Quarter: 2021Q2

REPORT INFORMATION
  Report Type: Spontaneous
  Country: FR (occurrence: FR)
  Receive Date: 20210423
  Receipt Date: 20210423
  Transmission Date: 20210717
  Serious: Yes (Hospitalization)
  Sender: FDA-Public Use
  Company Number: FR-TEVA-2021-FR-1902994

PATIENT
  Age: 70 Year
  Sex: Male

DRUGS (11)
  1. ELIQUIS [Concomitant]
     Active Substance: APIXABAN
     Dosage: 2 DF
     Route: 048
  2. DOLIPRANE [Concomitant]
     Active Substance: ACETAMINOPHEN
     Route: 048
  3. FUROSEMIDE. [Concomitant]
     Active Substance: FUROSEMIDE
     Route: 048
  4. SIFROL 0,52 MG, COMPRIME A LIBERATION PROLONGEE [Concomitant]
     Active Substance: PRAMIPEXOLE DIHYDROCHLORIDE
     Dosage: 1 DF
     Route: 048
  5. SINEMET COMPRIME SECABLE [Concomitant]
     Dosage: UNIT DOSE :2 DF , STRENGTH : 250 MG/25 MG
     Route: 048
  6. AMIODARONE [Suspect]
     Active Substance: AMIODARONE
     Indication: ATRIAL FIBRILLATION
     Dosage: 200 MG
     Route: 048
     Dates: start: 201908, end: 20201117
  7. ALLOPURINOL. [Concomitant]
     Active Substance: ALLOPURINOL
     Route: 048
  8. SINEMET COMPRIME SECABLE [Concomitant]
     Dosage: UNIT DOSE :2 DF ,  STRENGTH : 100 MG/10MG
     Route: 048
  9. CODOLIPRANE 500 MG/30 MG, COMPRIME [Concomitant]
     Active Substance: ACETAMINOPHEN\CODEINE PHOSPHATE
     Route: 048
  10. DICLOFENAC [Concomitant]
     Active Substance: DICLOFENAC
     Route: 003
  11. MOVICOL [Concomitant]
     Active Substance: POLYETHYLENE GLYCOL 3350\POTASSIUM CHLORIDE\SODIUM BICARBONATE\SODIUM CHLORIDE
     Route: 048

REACTIONS (1)
  - Sinus arrhythmia [Recovering/Resolving]

NARRATIVE: CASE EVENT DATE: 20201117
